FAERS Safety Report 5304554-2 (Version None)
Quarter: 2007Q2

REPORT INFORMATION
  Report Type: 
  Country: None (occurrence: None)
  Receive Date: 20070423
  Receipt Date: 20070412
  Transmission Date: 20071010
  Serious: Yes (Hospitalization)
  Sender: FDA-Public Use
  Company Number: FI-NOVOPROD-262683

PATIENT
  Age: 68 Year
  Sex: Female

DRUGS (1)
  1. VAGIFEM [Suspect]
     Indication: DRUG USE FOR UNKNOWN INDICATION
     Dosage: UNK, BIW
     Dates: start: 20051201, end: 20070301

REACTIONS (2)
  - ABDOMINAL PAIN [None]
  - TREMOR [None]
